FAERS Safety Report 9734371 (Version 2)
Quarter: 2013Q4

REPORT INFORMATION
  Report Type: Spontaneous
  Country: US (occurrence: US)
  Receive Date: 20131206
  Receipt Date: 20131214
  Transmission Date: 20140711
  Serious: No
  Sender: FDA-Public Use
  Company Number: US-009507513-1311USA011646

PATIENT
  Sex: Female
  Weight: 109.3 kg

DRUGS (1)
  1. NEXPLANON [Suspect]
     Dosage: UNK
     Route: 059
     Dates: start: 20130430

REACTIONS (4)
  - Device kink [Unknown]
  - Device breakage [Unknown]
  - Product quality issue [Unknown]
  - No adverse event [Unknown]
